FAERS Safety Report 7447094-7 (Version None)
Quarter: 2011Q2

REPORT INFORMATION
  Report Type: 
  Country: None (occurrence: None)
  Receive Date: 20110429
  Receipt Date: 20110425
  Transmission Date: 20111010
  Serious: Yes (Disabling)
  Sender: FDA-Public Use
  Company Number: JP-ROCHE-763100

PATIENT
  Sex: Female
  Weight: 47 kg

DRUGS (11)
  1. LIVALO [Concomitant]
     Route: 048
     Dates: start: 20050328
  2. RHEUMATREX [Suspect]
     Dosage: DISCONTINUED.
     Route: 048
     Dates: start: 20110113
  3. SELBEX [Concomitant]
     Route: 048
     Dates: start: 20100701
  4. AMLODIN [Concomitant]
     Route: 048
     Dates: start: 20060822
  5. RHEUMATREX [Suspect]
     Indication: RHEUMATOID ARTHRITIS
     Dosage: DISCONTINUED.
     Route: 048
     Dates: start: 20100402, end: 20101216
  6. FOLIC ACID [Concomitant]
     Route: 048
     Dates: start: 20051017
  7. ACTONEL [Concomitant]
     Route: 048
     Dates: start: 20081027
  8. DIOVAN [Concomitant]
     Route: 048
     Dates: start: 20040830
  9. LOXONIN [Concomitant]
     Route: 048
     Dates: start: 20100701
  10. ACTEMRA [Suspect]
     Indication: RHEUMATOID ARTHRITIS
     Dosage: DISCONTINUED.
     Route: 041
     Dates: start: 20091216, end: 20110113
  11. ALOSENN [Concomitant]
     Route: 048

REACTIONS (5)
  - SKIN ULCER [None]
  - PARONYCHIA [None]
  - WHITE BLOOD CELL COUNT DECREASED [None]
  - SKIN NECROSIS [None]
  - ENDOPHTHALMITIS [None]
